FAERS Safety Report 5630827-X (Version None)
Quarter: 2008Q1

REPORT INFORMATION
  Report Type: 
  Country: None (occurrence: None)
  Receive Date: 20080219
  Receipt Date: 20080211
  Transmission Date: 20080703
  Serious: Yes (Other)
  Sender: FDA-Public Use
  Company Number: FR-ROCHE-547121

PATIENT
  Age: 40 Year
  Sex: Female

DRUGS (15)
  1. FUZEON [Suspect]
     Indication: DRUG USE FOR UNKNOWN INDICATION
     Route: 048
     Dates: start: 20071121
  2. BACTRIM [Suspect]
     Route: 048
     Dates: start: 20080110
  3. ADIAZINE [Suspect]
     Indication: DRUG USE FOR UNKNOWN INDICATION
     Route: 048
     Dates: start: 20080107
  4. MALOCIDE [Suspect]
     Indication: DRUG USE FOR UNKNOWN INDICATION
     Route: 048
     Dates: start: 20080107
  5. EPIVIR [Suspect]
     Indication: DRUG USE FOR UNKNOWN INDICATION
     Route: 048
     Dates: start: 20071121
  6. KALETRA [Suspect]
     Indication: DRUG USE FOR UNKNOWN INDICATION
     Route: 048
     Dates: start: 20071121
  7. RETROVIR [Suspect]
     Indication: DRUG USE FOR UNKNOWN INDICATION
     Dosage: REPORTED AS LONG TERM THERAPY.
     Route: 048
     Dates: start: 20071121
  8. OMEPRAZOLE [Concomitant]
  9. HYDROCORTISONE [Concomitant]
  10. FORTUM [Concomitant]
  11. FLUCONAZOLE [Concomitant]
  12. COLIMYCINE [Concomitant]
  13. INSULINE [Concomitant]
  14. CALCIUM FOLINATE [Concomitant]
     Dates: end: 20080114
  15. CALCIUM FOLINATE [Concomitant]
     Dosage: DAILY.

REACTIONS (4)
  - ANAEMIA [None]
  - DISEASE PROGRESSION [None]
  - NEUTROPENIA [None]
  - THROMBOCYTOPENIA [None]
